FAERS Safety Report 6432827-9 (Version None)
Quarter: 2009Q4

REPORT INFORMATION
  Report Type: 
  Country: None (occurrence: None)
  Receive Date: 20091109
  Receipt Date: 20091104
  Transmission Date: 20100525
  Serious: Yes (Life-Threatening, Hospitalization)
  Sender: FDA-Public Use
  Company Number: B0518638A

PATIENT
  Sex: Female
  Weight: 50 kg

DRUGS (5)
  1. PAZOPANIB [Suspect]
     Indication: COLORECTAL CANCER
     Dosage: 800MG PER DAY
     Route: 048
     Dates: start: 20080406
  2. OXALIPLATIN [Suspect]
     Indication: COLORECTAL CANCER
     Dosage: 100MGM2 PER DAY
     Route: 042
     Dates: start: 20080402
  3. FOLINIC ACID [Suspect]
     Indication: COLORECTAL CANCER
     Dosage: 400MGM2 PER DAY
     Route: 042
     Dates: start: 20080402
  4. FLUOROURACIL [Suspect]
     Indication: COLORECTAL CANCER
     Dosage: 400MGM2 PER DAY
     Route: 040
     Dates: start: 20080402
  5. FLUOROURACIL [Suspect]
     Dosage: 2400MGM2 PER DAY
     Route: 042
     Dates: start: 20080402

REACTIONS (4)
  - ASTHENIA [None]
  - FEBRILE NEUTROPENIA [None]
  - STOMATITIS [None]
  - THROMBOCYTOPENIA [None]
